FAERS Safety Report 17770672 (Version 2)
Quarter: 2020Q4

REPORT INFORMATION
  Report Type: Report from Study
  Country: ES (occurrence: ES)
  Receive Date: 20200512
  Receipt Date: 20201207
  Transmission Date: 20210113
  Serious: Yes (Hospitalization)
  Sender: FDA-Public Use
  Company Number: ES-ROCHE-2598927

PATIENT
  Age: 70 Year
  Sex: Male
  Weight: 58 kg

DRUGS (7)
  1. ATEZOLIZUMAB. [Suspect]
     Active Substance: ATEZOLIZUMAB
     Indication: MESOTHELIOMA
     Dosage: ON 11/NOV/2020, HE RECEIVED LAST DOSE PRIOR TO SECOND OCCURRENCE OF HYPOGLYCEMIA
     Route: 042
     Dates: start: 20200403
  2. CARBOPLATIN. [Suspect]
     Active Substance: CARBOPLATIN
     Indication: MESOTHELIOMA
     Dosage: ON 26/AUG/2020, HE RECEIVED LAST DOSE BEFORE SECOND OCCURRENCE OF HYPOGLYCEMIA.
     Route: 042
     Dates: start: 20200403
  3. TAZOBACTAM [Concomitant]
     Active Substance: TAZOBACTAM
  4. PEMETREXED. [Suspect]
     Active Substance: PEMETREXED
     Indication: MESOTHELIOMA
     Dosage: ON 26/AUG/2020, HE RECEIVED LAST DOSE BEFORE SECOND OCCURRENCE OF HYPOGLYCEMIA.
     Route: 042
     Dates: start: 20200403
  5. OCTREOTIDE. [Concomitant]
     Active Substance: OCTREOTIDE
  6. PIPERACILIN [Concomitant]
  7. BEVACIZUMAB. [Suspect]
     Active Substance: BEVACIZUMAB
     Indication: MESOTHELIOMA
     Dosage: ON 11/NOV/2020, HE RECEIVED LAST DOSE BEFORE SECOND OCCURRENCE OF HYPOGLYCEMIA.
     Route: 042
     Dates: start: 20200403

REACTIONS (2)
  - Hypoglycaemia [Not Recovered/Not Resolved]
  - Hypoglycaemia [Recovered/Resolved]

NARRATIVE: CASE EVENT DATE: 20200508
